FAERS Safety Report 16421704 (Version 3)
Quarter: 2019Q4

REPORT INFORMATION
  Report Type: Spontaneous
  Country: US (occurrence: US)
  Receive Date: 20190612
  Receipt Date: 20191030
  Transmission Date: 20200122
  Serious: No
  Sender: FDA-Public Use
  Company Number: US-LEXICON PHARMACEUTICALS, INC-19-1606-00604

PATIENT
  Sex: Female

DRUGS (13)
  1. TUMS [Concomitant]
     Active Substance: CALCIUM CARBONATE
  2. MICARDIS [Concomitant]
     Active Substance: TELMISARTAN
  3. PROVERA [Concomitant]
     Active Substance: MEDROXYPROGESTERONE ACETATE
  4. TELOTRISTAT ETHYL [Suspect]
     Active Substance: TELOTRISTAT ETHYL
     Indication: CARCINOID SYNDROME
     Route: 048
     Dates: start: 20190507, end: 2019
  5. TELOTRISTAT ETHYL [Suspect]
     Active Substance: TELOTRISTAT ETHYL
     Route: 048
     Dates: start: 2019, end: 2019
  6. VITAMIN D3 [Concomitant]
     Active Substance: CHOLECALCIFEROL
  7. TELOTRISTAT ETHYL [Suspect]
     Active Substance: TELOTRISTAT ETHYL
     Route: 048
     Dates: start: 2019, end: 201907
  8. TELOTRISTAT ETHYL [Suspect]
     Active Substance: TELOTRISTAT ETHYL
     Route: 048
     Dates: start: 201907
  9. OCTREOTIDE ACETATE. [Concomitant]
     Active Substance: OCTREOTIDE ACETATE
  10. ESTRACE [Concomitant]
     Active Substance: ESTRADIOL
  11. ADULT MULTIVITAMIN [Concomitant]
  12. TELOTRISTAT ETHYL [Suspect]
     Active Substance: TELOTRISTAT ETHYL
  13. NORVASC [Concomitant]
     Active Substance: AMLODIPINE BESYLATE

REACTIONS (2)
  - Wrong technique in product usage process [Recovered/Resolved]
  - Constipation [Unknown]

NARRATIVE: CASE EVENT DATE: 2019
